FAERS Safety Report 5246784-4 (Version None)
Quarter: 2007Q1

REPORT INFORMATION
  Report Type: 
  Country: None (occurrence: None)
  Receive Date: 20070223
  Receipt Date: 20070223
  Transmission Date: 20070707
  Serious: Yes (Other)
  Sender: FDA-Public Use
  Company Number: None

PATIENT
  Sex: Male
  Weight: 56.246 kg

DRUGS (2)
  1. DECADRON [Suspect]
     Route: 042
  2. SODIUM CHLORIDE [Suspect]

REACTIONS (3)
  - BACK PAIN [None]
  - DRUG EFFECT DECREASED [None]
  - FLUSHING [None]
